FAERS Safety Report 23650557 (Version 1)
Quarter: 2024Q1

REPORT INFORMATION
  Report Type: Spontaneous
  Country: US (occurrence: None)
  Receive Date: 20240320
  Receipt Date: 20240320
  Transmission Date: 20240410
  Serious: Yes (Hospitalization)
  Sender: FDA-Public Use
  Company Number: US-ROCHE-3460098

PATIENT
  Sex: Female
  Weight: 72.64 kg

DRUGS (2)
  1. VABYSMO [Suspect]
     Active Substance: FARICIMAB\FARICIMAB-SVOA
     Indication: Neovascular age-related macular degeneration
     Route: 050
     Dates: end: 20230829
  2. VABYSMO [Suspect]
     Active Substance: FARICIMAB\FARICIMAB-SVOA
     Route: 050
     Dates: end: 20230905

REACTIONS (4)
  - Vitreous floaters [Unknown]
  - Visual impairment [Unknown]
  - Macular thickening [Unknown]
  - Dry age-related macular degeneration [Unknown]
